FAERS Safety Report 9408756 (Version 1)
Quarter: 2013Q3

REPORT INFORMATION
  Report Type: Spontaneous
  Country: US (occurrence: US)
  Receive Date: 20130718
  Receipt Date: 20130718
  Transmission Date: 20140515
  Serious: Yes (Hospitalization)
  Sender: FDA-Public Use
  Company Number: US-009507513-1307IND007651

PATIENT
  Age: 17 Year
  Sex: Male
  Weight: 85.44 kg

DRUGS (1)
  1. SAPHRIS [Suspect]
     Indication: BIPOLAR I DISORDER
     Dosage: 5 MG, BID
     Route: 048

REACTIONS (4)
  - Bipolar I disorder [Unknown]
  - Suicidal ideation [Unknown]
  - Depression [Unknown]
  - Incorrect route of drug administration [Unknown]
